FAERS Safety Report 5948987-X (Version None)
Quarter: 2008Q4

REPORT INFORMATION
  Report Type: 
  Country: None (occurrence: None)
  Receive Date: 20081111
  Receipt Date: 20081104
  Transmission Date: 20090506
  Serious: Yes (Other)
  Sender: FDA-Public Use
  Company Number: AR-ELI_LILLY_AND_COMPANY-AR200810006795

PATIENT
  Sex: Female

DRUGS (3)
  1. BYETTA [Suspect]
     Indication: TYPE 2 DIABETES MELLITUS
     Dosage: 5 UG, UNK
     Route: 058
     Dates: start: 20081022
  2. DIAMICRON MR [Concomitant]
     Dosage: UNK, EACH MORNING
     Route: 065
  3. LEVOTHYROXINE SODIUM [Concomitant]
     Indication: HYPOTHYROIDISM
     Dosage: UNK, UNKNOWN
     Route: 065

REACTIONS (7)
  - HYPOGLYCAEMIA [None]
  - MUSCLE RIGIDITY [None]
  - NAUSEA [None]
  - NERVOUSNESS [None]
  - SYNCOPE [None]
  - TACHYCARDIA [None]
  - VISION BLURRED [None]
